FAERS Safety Report 8356897-6 (Version None)
Quarter: 2012Q2

REPORT INFORMATION
  Report Type: 
  Country: None (occurrence: None)
  Receive Date: 20120510
  Receipt Date: 20120504
  Transmission Date: 20120825
  Serious: Yes (Hospitalization, Disabling, Other)
  Sender: FDA-Public Use
  Company Number: 2011SP058947

PATIENT
  Age: 39 Year
  Sex: Female
  Weight: 79.3795 kg

DRUGS (2)
  1. NUVARING [Suspect]
     Indication: CONTRACEPTION
     Dates: start: 20030101
  2. NUVARING [Suspect]
     Indication: CONTRACEPTION
     Dates: start: 20100126, end: 20101123

REACTIONS (29)
  - OVARIAN CYST [None]
  - ATRIAL FIBRILLATION [None]
  - MENTAL DISORDER [None]
  - HAEMOGLOBIN DECREASED [None]
  - CULTURE URINE POSITIVE [None]
  - ARRHYTHMIA [None]
  - DEEP VEIN THROMBOSIS [None]
  - TACHYCARDIA [None]
  - EMOTIONAL DISORDER [None]
  - NASOPHARYNGITIS [None]
  - BRADYCARDIA [None]
  - URETERIC OBSTRUCTION [None]
  - UTERINE LEIOMYOMA [None]
  - STAPHYLOCOCCAL INFECTION [None]
  - CERVIX CARCINOMA [None]
  - RENAL INJURY [None]
  - PAIN IN EXTREMITY [None]
  - IMPAIRED WORK ABILITY [None]
  - PARANOIA [None]
  - DEHYDRATION [None]
  - ANGINA PECTORIS [None]
  - RENAL DISORDER [None]
  - HYDRONEPHROSIS [None]
  - RENAL FAILURE [None]
  - URINARY TRACT INFECTION [None]
  - PULMONARY EMBOLISM [None]
  - PALPITATIONS [None]
  - BACK PAIN [None]
  - SINUS TACHYCARDIA [None]
